FAERS Safety Report 14023927 (Version 7)
Quarter: 2020Q2

REPORT INFORMATION
  Report Type: Report from Study
  Country: US (occurrence: US)
  Receive Date: 20170928
  Receipt Date: 20200514
  Transmission Date: 20200713
  Serious: Yes (Hospitalization, Other)
  Sender: FDA-Public Use
  Company Number: US-SA-2016SA227098

PATIENT
  Age: 63 Year
  Sex: Female

DRUGS (2)
  1. TERIFLUNOMIDE. [Suspect]
     Active Substance: TERIFLUNOMIDE
     Dosage: 14 MG, QD
     Route: 048
     Dates: start: 20160915
  2. TERIFLUNOMIDE. [Suspect]
     Active Substance: TERIFLUNOMIDE
     Indication: MULTIPLE SCLEROSIS
     Dosage: 14 MG, QD
     Route: 048
     Dates: start: 2016

REACTIONS (16)
  - Multiple sclerosis relapse [Not Recovered/Not Resolved]
  - Chromaturia [Unknown]
  - Vomiting [Unknown]
  - Abdominal pain upper [Unknown]
  - Myalgia [Unknown]
  - Mobility decreased [Unknown]
  - Rash vesicular [Not Recovered/Not Resolved]
  - Thinking abnormal [Unknown]
  - Fall [Unknown]
  - Condition aggravated [Unknown]
  - Chest discomfort [Unknown]
  - Multiple sclerosis relapse [Unknown]
  - Musculoskeletal stiffness [Unknown]
  - Nausea [Unknown]
  - Skin lesion [Unknown]
  - Upper respiratory tract infection [Recovered/Resolved]

NARRATIVE: CASE EVENT DATE: 20161219
